FAERS Safety Report 23633089 (Version 1)
Quarter: 2024Q1

REPORT INFORMATION
  Report Type: Spontaneous
  Country: US (occurrence: US)
  Receive Date: 20240314
  Receipt Date: 20240314
  Transmission Date: 20240410
  Serious: Yes (Death, Hospitalization)
  Sender: FDA-Public Use
  Company Number: US-DRL-USA-LIT/USA/24/0004070

PATIENT
  Age: 37 Year
  Sex: Female

DRUGS (15)
  1. PROPOFOL [Suspect]
     Active Substance: PROPOFOL
     Indication: New onset refractory status epilepticus
  2. LEVETIRACETAM [Suspect]
     Active Substance: LEVETIRACETAM
     Indication: New onset refractory status epilepticus
  3. FOSPHENYTOIN [Suspect]
     Active Substance: FOSPHENYTOIN
     Indication: New onset refractory status epilepticus
  4. DEXMEDETOMIDINE [Suspect]
     Active Substance: DEXMEDETOMIDINE
     Indication: New onset refractory status epilepticus
  5. BRIVARACETAM [Suspect]
     Active Substance: BRIVARACETAM
     Indication: New onset refractory status epilepticus
  6. CENOBAMATE [Suspect]
     Active Substance: CENOBAMATE
     Indication: New onset refractory status epilepticus
  7. LACOSAMIDE [Suspect]
     Active Substance: LACOSAMIDE
     Indication: New onset refractory status epilepticus
  8. LEVOCARNITINE [Suspect]
     Active Substance: LEVOCARNITINE
     Indication: New onset refractory status epilepticus
  9. PERAMPANEL [Suspect]
     Active Substance: PERAMPANEL
     Indication: New onset refractory status epilepticus
  10. ZONISAMIDE [Suspect]
     Active Substance: ZONISAMIDE
     Indication: New onset refractory status epilepticus
  11. KETAMINE [Suspect]
     Active Substance: KETAMINE
     Indication: New onset refractory status epilepticus
  12. METHYLPREDNISOLONE [Suspect]
     Active Substance: METHYLPREDNISOLONE
     Indication: New onset refractory status epilepticus
  13. RITUXIMAB [Suspect]
     Active Substance: RITUXIMAB
     Indication: New onset refractory status epilepticus
  14. TOCILIZUMAB [Suspect]
     Active Substance: TOCILIZUMAB
     Indication: New onset refractory status epilepticus
  15. PENTOBARBITAL [Suspect]
     Active Substance: PENTOBARBITAL
     Indication: New onset refractory status epilepticus
     Route: 041

REACTIONS (1)
  - Treatment failure [Fatal]
